FAERS Safety Report 9913652 (Version 1)
Quarter: 2014Q1

REPORT INFORMATION
  Report Type: Spontaneous
  Country: GB (occurrence: GB)
  Receive Date: 20140220
  Receipt Date: 20140220
  Transmission Date: 20141002
  Serious: Yes (Hospitalization)
  Sender: FDA-Public Use
  Company Number: GB-BRISTOL-MYERS SQUIBB COMPANY-20232542

PATIENT
  Age: 57 Year
  Sex: Male

DRUGS (5)
  1. METFORMIN HCL [Suspect]
     Route: 048
  2. PIOGLITAZONE HCL [Suspect]
     Route: 048
  3. BISOPROLOL [Concomitant]
     Route: 048
  4. CANDESARTAN [Concomitant]
     Route: 048
  5. SPIRONOLACTONE [Concomitant]
     Route: 048

REACTIONS (2)
  - Cardiac failure congestive [Not Recovered/Not Resolved]
  - Dyspnoea [Not Recovered/Not Resolved]
